FAERS Safety Report 5489255-2 (Version None)
Quarter: 2007Q4

REPORT INFORMATION
  Report Type: 
  Country: None (occurrence: None)
  Receive Date: 20071018
  Receipt Date: 20071015
  Transmission Date: 20080405
  Serious: Yes (Life-Threatening, Hospitalization, Other)
  Sender: FDA-Public Use
  Company Number: PHEH2007US08883

PATIENT
  Age: 77 Year
  Sex: Female
  Weight: 67.573 kg

DRUGS (16)
  1. DIOVAN [Suspect]
     Dosage: 80 MG, QD
     Route: 048
     Dates: start: 20061107, end: 20070523
  2. RANITIDINE HCL [Concomitant]
     Dosage: UNK, UNK
     Route: 048
     Dates: start: 20040210
  3. ALLEGRA [Concomitant]
     Dosage: UNK, UNK
  4. FOSAMAX [Concomitant]
     Dosage: UNK, UNK
     Route: 048
     Dates: start: 20040210
  5. CALCIUM [Concomitant]
     Dosage: UNK, QD
     Route: 048
     Dates: start: 20050712
  6. ATARAX [Concomitant]
     Dosage: 25 MG, PRN
     Route: 048
     Dates: start: 20050712
  7. AMBIEN [Concomitant]
     Dosage: 5 MG, QHS PRN
     Route: 048
     Dates: start: 20050712
  8. LASIX [Concomitant]
     Dosage: 40 MG, QD
  9. LIBRIUM [Concomitant]
  10. IMURAN [Concomitant]
     Indication: AUTOIMMUNE HEPATITIS
     Dosage: 50 MG, QD
  11. PREDNISONE [Concomitant]
     Indication: AUTOIMMUNE HEPATITIS
     Dosage: 40 MG, QD
  12. ALDACTONE [Concomitant]
     Dosage: 150 MG, BID
  13. ALDACTONE [Concomitant]
     Dosage: 50 MG, BID
  14. LACTULOSE [Concomitant]
     Dosage: 30 ML, TID
     Route: 048
  15. ESOMEPRAZOLE [Concomitant]
     Dosage: 40 MG, QD
  16. STOOL SOFTENER [Concomitant]
     Dosage: UNK, QD

REACTIONS (41)
  - ABDOMINAL DISTENSION [None]
  - ABDOMINAL PAIN [None]
  - ACID FAST STAIN POSITIVE [None]
  - ALANINE AMINOTRANSFERASE INCREASED [None]
  - ASCITES [None]
  - ASPARTATE AMINOTRANSFERASE INCREASED [None]
  - AUTOIMMUNE HEPATITIS [None]
  - BILIARY FIBROSIS [None]
  - BIOPSY LIVER ABNORMAL [None]
  - BLOOD ALBUMIN DECREASED [None]
  - BLOOD ALKALINE PHOSPHATASE INCREASED [None]
  - BLOOD BILIRUBIN ABNORMAL [None]
  - BLOOD TEST ABNORMAL [None]
  - BLOOD THYROID STIMULATING HORMONE ABNORMAL [None]
  - BLOODY AIRWAY DISCHARGE [None]
  - BRAIN NATRIURETIC PEPTIDE DECREASED [None]
  - BURSITIS [None]
  - CATARACT [None]
  - CHOLECYSTECTOMY [None]
  - DECREASED APPETITE [None]
  - DISEASE PROGRESSION [None]
  - DYSLIPIDAEMIA [None]
  - DYSPNOEA [None]
  - GASTROINTESTINAL HAEMORRHAGE [None]
  - GASTROOESOPHAGEAL REFLUX DISEASE [None]
  - GENERAL PHYSICAL CONDITION ABNORMAL [None]
  - HEPATIC CIRRHOSIS [None]
  - HEPATIC ENZYME INCREASED [None]
  - HEPATITIS B ANTIBODY ABNORMAL [None]
  - HYPERTENSION [None]
  - INTERNATIONAL NORMALISED RATIO DECREASED [None]
  - IRON BINDING CAPACITY TOTAL DECREASED [None]
  - JAUNDICE [None]
  - OEDEMA [None]
  - OEDEMA PERIPHERAL [None]
  - PARACENTESIS [None]
  - PLEURAL EFFUSION [None]
  - PORTAL HYPERTENSION [None]
  - TREMOR [None]
  - VOMITING [None]
  - WEIGHT DECREASED [None]
